FAERS Safety Report 19447708 (Version 1)
Quarter: 2021Q2

REPORT INFORMATION
  Report Type: Spontaneous
  Country: US (occurrence: US)
  Receive Date: 20210622
  Receipt Date: 20210622
  Transmission Date: 20210717
  Serious: Yes (Death)
  Sender: FDA-Public Use
  Company Number: None

PATIENT
  Age: 54 Year
  Sex: Male
  Weight: 98.7 kg

DRUGS (6)
  1. ISATUXIMAB [Suspect]
     Active Substance: ISATUXIMAB
     Indication: AMYLOIDOSIS
     Dosage: ?          OTHER FREQUENCY:QWEEKLY;?
     Route: 041
     Dates: start: 20210528, end: 20210603
  2. DIPHENHYDRAMINE. [Concomitant]
     Active Substance: DIPHENHYDRAMINE
     Dates: start: 20210528, end: 20210603
  3. MONTELUKAST [Concomitant]
     Active Substance: MONTELUKAST SODIUM
     Dates: start: 20210528, end: 20210603
  4. DEXAMETHASONE. [Concomitant]
     Active Substance: DEXAMETHASONE
     Dates: start: 20210528, end: 20210603
  5. VALACYCLOVIR [Concomitant]
     Active Substance: VALACYCLOVIR HYDROCHLORIDE
     Dates: start: 20210528, end: 20210610
  6. ACETAMINOPHEN. [Concomitant]
     Active Substance: ACETAMINOPHEN
     Dates: start: 20210528, end: 20210603

REACTIONS (9)
  - Pleural effusion [None]
  - Septic shock [None]
  - Acute kidney injury [None]
  - Pancreatitis chronic [None]
  - Petechiae [None]
  - Ventricular arrhythmia [None]
  - Vomiting [None]
  - Nausea [None]
  - Cardiac arrest [None]

NARRATIVE: CASE EVENT DATE: 20210619
